FAERS Safety Report 16286163 (Version 1)
Quarter: 2019Q2

REPORT INFORMATION
  Report Type: Spontaneous
  Country: US (occurrence: US)
  Receive Date: 20190507
  Receipt Date: 20190507
  Transmission Date: 20190711
  Serious: Yes (Disabling, Other)
  Sender: FDA-Public Use
  Company Number: None

PATIENT
  Age: 72 Year
  Weight: 90 kg

DRUGS (2)
  1. AVASTIN [Suspect]
     Active Substance: BEVACIZUMAB
     Indication: AGE-RELATED MACULAR DEGENERATION
  2. AVASTIN [Suspect]
     Active Substance: BEVACIZUMAB

REACTIONS (3)
  - Infection [None]
  - Device malfunction [None]
  - Needle issue [None]

NARRATIVE: CASE EVENT DATE: 20190502
